FAERS Safety Report 15014508 (Version 2)
Quarter: 2018Q3

REPORT INFORMATION
  Report Type: Report from Study
  Country: FR (occurrence: FR)
  Receive Date: 20180615
  Receipt Date: 20180906
  Transmission Date: 20181010
  Serious: Yes (Hospitalization)
  Sender: FDA-Public Use
  Company Number: FR-ROCHE-2138366

PATIENT
  Age: 71 Year
  Sex: Male
  Weight: 66 kg

DRUGS (14)
  1. RITUXIMAB. [Suspect]
     Active Substance: RITUXIMAB
     Indication: WALDENSTROM^S MACROGLOBULINAEMIA
     Dosage: DOSE OF RITUXIMAB BEFORE SAE ONSET 1400 MG. DATE OF LAST DOSE OF RITUXIMAB 04/JUN/2018.
     Route: 058
     Dates: start: 20180507
  2. DEXAMETHASONE. [Suspect]
     Active Substance: DEXAMETHASONE
     Indication: WALDENSTROM^S MACROGLOBULINAEMIA
     Dosage: DATE OF LAST DOSE OF DEXAMETHASONE 04/JUN/2018
     Route: 048
     Dates: start: 20180409
  3. TAMSULOSINE [Concomitant]
     Active Substance: TAMSULOSIN HYDROCHLORIDE
     Indication: PROSTATIC ADENOMA
     Dosage: 0.4MG/D
     Route: 065
     Dates: start: 2015
  4. ALLOPURINOL. [Concomitant]
     Active Substance: ALLOPURINOL
     Indication: HYPERURICAEMIA
     Dosage: 200MG/D
     Route: 065
     Dates: start: 2000
  5. AUGMENTIN [Concomitant]
     Active Substance: AMOXICILLIN\CLAVULANATE POTASSIUM
     Indication: PRODUCTIVE COUGH
     Dosage: 1G/D
     Route: 065
     Dates: start: 20180604
  6. DOLIPRANE [Concomitant]
     Active Substance: ACETAMINOPHEN
     Indication: PAIN
     Dosage: 500MG/D
     Route: 065
     Dates: start: 20180607
  7. MONTELUKAST [Concomitant]
     Active Substance: MONTELUKAST SODIUM
     Indication: EMPHYSEMA
     Dosage: 1MG/D
     Route: 065
     Dates: start: 2009
  8. NEURONTIN [Concomitant]
     Active Substance: GABAPENTIN
     Indication: NEUROPATHY PERIPHERAL
     Dosage: 200MG/D
     Route: 065
     Dates: start: 201805
  9. LEVOCETIRIZINE [Concomitant]
     Active Substance: LEVOCETIRIZINE
     Indication: EMPHYSEMA
     Dosage: 5MG/D
     Route: 065
     Dates: start: 2009
  10. RITUXIMAB. [Suspect]
     Active Substance: RITUXIMAB
     Indication: WALDENSTROM^S MACROGLOBULINAEMIA
     Route: 042
     Dates: start: 20180409
  11. LANSOPRAZOLE. [Concomitant]
     Active Substance: LANSOPRAZOLE
     Indication: GASTROOESOPHAGEAL REFLUX DISEASE
     Dosage: 30MG/D
     Route: 065
     Dates: start: 201805
  12. PRAXILENE [Concomitant]
     Active Substance: NAFRONYL
     Dosage: 200MG* 4/D
     Route: 065
  13. SULFAMETHOXAZOLE/TRIMETHOPRIM [Concomitant]
     Active Substance: SULFAMETHOXAZOLE\TRIMETHOPRIM
     Route: 065
     Dates: start: 20180409
  14. CYCLOPHOSPHAMIDE. [Suspect]
     Active Substance: CYCLOPHOSPHAMIDE
     Indication: WALDENSTROM^S MACROGLOBULINAEMIA
     Dosage: INITIAL DOSE OF CYCLOPHOSPHAMIDE 100 MG/M2 X 2;  ABSOLUTE DAILY DOSE OF CYCLOPHOSPHAMIDE ON DAY 1?5
     Route: 048
     Dates: start: 20180409

REACTIONS (1)
  - Arthritis [Recovered/Resolved]

NARRATIVE: CASE EVENT DATE: 20180606
